FAERS Safety Report 6201816-1 (Version None)
Quarter: 2009Q2

REPORT INFORMATION
  Report Type: 
  Country: None (occurrence: None)
  Receive Date: 20090526
  Receipt Date: 20090518
  Transmission Date: 20091009
  Serious: Yes (Other)
  Sender: FDA-Public Use
  Company Number: US-ABBOTT-09P-163-0574652-00

PATIENT
  Sex: Female
  Weight: 81.72 kg

DRUGS (18)
  1. HUMIRA [Suspect]
     Indication: RHEUMATOID ARTHRITIS
     Dosage: STOPPED DUE TO CHEST PAIN
     Route: 058
     Dates: start: 20070101, end: 20071201
  2. HUMIRA [Suspect]
     Route: 058
     Dates: end: 20080101
  3. HUMIRA [Suspect]
     Dosage: HAS USED OFF AND ON; SINCE JAN 2009, RECEIVED 2 INJECTIONS UNTIL APR 2009
     Dates: start: 20080101, end: 20090401
  4. NAPROXEN [Concomitant]
     Indication: PAIN
  5. TYLENOL [Concomitant]
     Indication: PAIN
  6. SKELAXIN [Concomitant]
     Indication: PAIN
  7. TRAMADOL HCL [Concomitant]
     Indication: PAIN
  8. PROCARDIA XL [Concomitant]
     Indication: HYPERTENSION
     Route: 048
  9. PROCARDIA XL [Concomitant]
     Indication: CARDIAC VALVE DISEASE
  10. PROCARDIA XL [Concomitant]
     Indication: MIGRAINE
  11. EFFEXOR XR [Concomitant]
     Indication: NIGHT SWEATS
  12. FOLIC ACID [Concomitant]
     Indication: GASTRIC DISORDER
     Route: 048
  13. PROTONIX [Concomitant]
     Indication: GASTRIC DISORDER
     Route: 048
  14. TOPAMAX [Concomitant]
     Indication: DRUG USE FOR UNKNOWN INDICATION
     Route: 048
  15. FLEXERIL [Concomitant]
     Indication: DRUG USE FOR UNKNOWN INDICATION
  16. NEURONTIN [Concomitant]
     Indication: DRUG USE FOR UNKNOWN INDICATION
  17. UNKNOWN VITAMINS [Concomitant]
     Indication: DRUG USE FOR UNKNOWN INDICATION
     Route: 048
  18. ASPIRIN [Concomitant]
     Indication: DRUG USE FOR UNKNOWN INDICATION

REACTIONS (13)
  - BONE PAIN [None]
  - CARDIAC FIBRILLATION [None]
  - CHEST PAIN [None]
  - CHOLELITHIASIS [None]
  - DRUG DOSE OMISSION [None]
  - DYSPEPSIA [None]
  - DYSSTASIA [None]
  - GALLBLADDER DISORDER [None]
  - GASTROINTESTINAL DISORDER [None]
  - GRIP STRENGTH DECREASED [None]
  - INJECTION SITE PAIN [None]
  - LOWER RESPIRATORY TRACT INFECTION [None]
  - WEIGHT DECREASED [None]
